FAERS Safety Report 8969005 (Version 1)
Quarter: 2012Q4

REPORT INFORMATION
  Report Type: 
  Country: US (occurrence: US)
  Receive Date: 20121217
  Receipt Date: 20121217
  Transmission Date: 20130627
  Serious: No
  Sender: FDA-Public Use
  Company Number: US-B.I. PHARMACEUTICALS,INC./RIDGEFIELD-2012-BP-00404PF

PATIENT
  Age: 51 Year
  Sex: Female

DRUGS (4)
  1. SPIRIVA HANDIHALER [Suspect]
     Route: 055
  2. SPIRIVA HANDIHALER [Suspect]
     Dosage: 18 mcg
     Route: 048
     Dates: start: 20110801
  3. LYRICA [Suspect]
     Route: 048
  4. LYRICA [Suspect]
     Route: 055
     Dates: start: 20110801

REACTIONS (2)
  - Incorrect route of drug administration [Recovered/Resolved]
  - Incorrect route of drug administration [Recovered/Resolved]
